FAERS Safety Report 7974691-2 (Version None)
Quarter: 2011Q4

REPORT INFORMATION
  Report Type: 
  Country: None (occurrence: None)
  Receive Date: 20111213
  Receipt Date: 20111206
  Transmission Date: 20120403
  Serious: Yes (Life-Threatening, Other)
  Sender: FDA-Public Use
  Company Number: JP-CEPHALON-2011001856

PATIENT
  Sex: Male
  Weight: 68 kg

DRUGS (12)
  1. BENDAMUSTINE HCL [Suspect]
     Indication: MANTLE CELL LYMPHOMA
     Route: 041
     Dates: start: 20101210, end: 20101211
  2. BENDAMUSTINE HCL [Suspect]
     Route: 041
     Dates: start: 20110328, end: 20110329
  3. FAMOTIDINE [Concomitant]
     Dates: start: 20101210
  4. MECOBALAMIN [Concomitant]
     Dates: start: 20101210
  5. UBIDECARENONE [Concomitant]
     Dates: start: 20101210
  6. BENDAMUSTINE HCL [Suspect]
     Route: 041
     Dates: start: 20110125, end: 20110126
  7. ALLOPURINOL [Concomitant]
     Dates: start: 20101210
  8. BENDAMUSTINE HCL [Suspect]
     Route: 041
     Dates: start: 20110308, end: 20110309
  9. RAMOSETRON HYDROCHLORIDE [Concomitant]
     Dates: start: 20101210, end: 20110126
  10. SULFAMETHOXAZOLE AND TRIMETHOPRIM [Concomitant]
     Dates: start: 20101210
  11. BENDAMUSTINE HCL [Suspect]
     Route: 041
     Dates: start: 20110104, end: 20110105
  12. BENDAMUSTINE HCL [Suspect]
     Route: 041
     Dates: start: 20110215, end: 20110216

REACTIONS (11)
  - WHITE BLOOD CELL COUNT DECREASED [None]
  - DECREASED APPETITE [None]
  - C-REACTIVE PROTEIN INCREASED [None]
  - NEUTROPHIL COUNT DECREASED [None]
  - NAUSEA [None]
  - LYMPHOCYTE COUNT DECREASED [None]
  - RASH [None]
  - PHLEBITIS [None]
  - CYSTITIS HAEMORRHAGIC [None]
  - DYSGEUSIA [None]
  - PLATELET COUNT DECREASED [None]
